FAERS Safety Report 11534090 (Version 1)
Quarter: 2015Q3

REPORT INFORMATION
  Report Type: Spontaneous
  Country: IT (occurrence: IT)
  Receive Date: 20150922
  Receipt Date: 20150922
  Transmission Date: 20151125
  Serious: Yes (Other)
  Sender: FDA-Public Use
  Company Number: IT-ALEMBIC PHARMACUETICALS LIMITED-2015SCAL000618

PATIENT

DRUGS (3)
  1. 5-FU                               /00098801/ [Interacting]
     Active Substance: FLUOROURACIL
     Indication: BLADDER CANCER
     Dosage: UNK
  2. HYDROCHLOROTHIAZIDE. [Suspect]
     Active Substance: HYDROCHLOROTHIAZIDE
     Indication: PRODUCT USED FOR UNKNOWN INDICATION
     Dosage: UNK
  3. CYCLOPHOSPHAMIDE. [Interacting]
     Active Substance: CYCLOPHOSPHAMIDE
     Indication: BLADDER CANCER
     Dosage: UNK

REACTIONS (2)
  - Neutropenia [Unknown]
  - Drug interaction [Unknown]
